FAERS Safety Report 10048905 (Version 1)
Quarter: 2014Q1

REPORT INFORMATION
  Report Type: Spontaneous
  Country: DE (occurrence: DE)
  Receive Date: 20140331
  Receipt Date: 20140331
  Transmission Date: 20141002
  Serious: Yes (Other)
  Sender: FDA-Public Use
  Company Number: DE-WATSON-2013-25085

PATIENT
  Age: 10 Week
  Sex: Male

DRUGS (1)
  1. LAMOTRIGINE (UNKNOWN) [Suspect]
     Indication: EPILEPSY
     Route: 063

REACTIONS (2)
  - Diarrhoea neonatal [Recovered/Resolved]
  - Faeces discoloured [Recovered/Resolved]
